FAERS Safety Report 16983712 (Version 1)
Quarter: 2019Q4

REPORT INFORMATION
  Report Type: Spontaneous
  Country: GB (occurrence: GB)
  Receive Date: 20191101
  Receipt Date: 20191101
  Transmission Date: 20200122
  Serious: Yes (Other)
  Sender: FDA-Public Use
  Company Number: GB-SHIRE-GB201936329

PATIENT

DRUGS (3)
  1. XANAX [Concomitant]
     Active Substance: ALPRAZOLAM
     Indication: PRODUCT USED FOR UNKNOWN INDICATION
  2. ELVANSE [Suspect]
     Active Substance: LISDEXAMFETAMINE DIMESYLATE
     Indication: ATTENTION DEFICIT/HYPERACTIVITY DISORDER
     Dosage: 30 MILLIGRAM
     Route: 065
     Dates: start: 20191015
  3. ELVANSE [Suspect]
     Active Substance: LISDEXAMFETAMINE DIMESYLATE
     Indication: BIPOLAR DISORDER
     Dosage: 10 MILLIGRAM
     Route: 065
     Dates: start: 20191015

REACTIONS (16)
  - Confusional state [Not Recovered/Not Resolved]
  - Dizziness [Unknown]
  - Intentional product use issue [Unknown]
  - Mood swings [Unknown]
  - Headache [Not Recovered/Not Resolved]
  - Palpitations [Unknown]
  - Muscle spasms [Not Recovered/Not Resolved]
  - Tachypnoea [Unknown]
  - Vomiting [Not Recovered/Not Resolved]
  - Restlessness [Unknown]
  - Anxiety [Unknown]
  - Influenza [Unknown]
  - Panic attack [Not Recovered/Not Resolved]
  - Paraesthesia [Unknown]
  - Syncope [Unknown]
  - Wrong technique in product usage process [Unknown]
